FAERS Safety Report 7891539-5 (Version None)
Quarter: 2011Q4

REPORT INFORMATION
  Report Type: 
  Country: None (occurrence: None)
  Receive Date: 20111103
  Receipt Date: 20110804
  Transmission Date: 20120403
  Serious: No
  Sender: FDA-Public Use
  Company Number: US-AMGEN-USASP2011039662

PATIENT
  Age: 80 Year
  Sex: Female

DRUGS (4)
  1. CELEBREX [Suspect]
  2. ENBREL [Suspect]
     Indication: RHEUMATOID ARTHRITIS
     Dosage: 50 MG, QWK
  3. PREDNISONE [Concomitant]
  4. METHOTREXATE [Concomitant]

REACTIONS (1)
  - CONTUSION [None]
